FAERS Safety Report 17387433 (Version 1)
Quarter: 2020Q1

REPORT INFORMATION
  Report Type: Spontaneous
  Country: PE (occurrence: US)
  Receive Date: 20200122
  Receipt Date: 20200122
  Transmission Date: 20200409
  Serious: Yes (Other)
  Sender: FDA-Public Use
  Company Number: None

PATIENT
  Age: 95 Year
  Sex: Male
  Weight: 50 kg

DRUGS (1)
  1. INVANZ [Suspect]
     Active Substance: ERTAPENEM SODIUM
     Dates: start: 20200117, end: 20200121

REACTIONS (3)
  - Gait disturbance [None]
  - Fatigue [None]
  - Coordination abnormal [None]

NARRATIVE: CASE EVENT DATE: 20200101
